FAERS Safety Report 20577478 (Version 1)
Quarter: 2022Q1

REPORT INFORMATION
  Report Type: Spontaneous
  Country: US (occurrence: US)
  Receive Date: 20220310
  Receipt Date: 20220310
  Transmission Date: 20220424
  Serious: Yes (Hospitalization)
  Sender: FDA-Public Use
  Company Number: US-MIRM-000318

PATIENT
  Age: 6 Year
  Sex: Female

DRUGS (8)
  1. LIVMARLI [Suspect]
     Active Substance: MARALIXIBAT CHLORIDE
     Indication: Product used for unknown indication
     Route: 048
     Dates: start: 20211228
  2. 1328777 (GLOBALC3Sep19): Ursodiol [Concomitant]
     Indication: Product used for unknown indication
  3. 1328139 (GLOBALC3Sep19): Rifampin [Concomitant]
     Indication: Product used for unknown indication
  4. 1328915 (GLOBALC3Sep19): Vitamin K1 [Concomitant]
     Indication: Product used for unknown indication
  5. 3641461 (GLOBALC3Sep19): AquADEKs [Concomitant]
     Indication: Product used for unknown indication
  6. 2650601 (GLOBALC3Sep19): Sildenafil citrate [Concomitant]
     Indication: Product used for unknown indication
  7. 1268236 (GLOBALC3Sep19): Omeprazole [Concomitant]
     Indication: Product used for unknown indication
  8. 1328878 (GLOBALC3Sep19): Vitamin E [Concomitant]
     Indication: Product used for unknown indication

REACTIONS (1)
  - Liver transplant [Unknown]

NARRATIVE: CASE EVENT DATE: 20220228
